FAERS Safety Report 5857404-X (Version None)
Quarter: 2008Q3

REPORT INFORMATION
  Report Type: 
  Country: None (occurrence: None)
  Receive Date: 20080826
  Receipt Date: 20080822
  Transmission Date: 20090109
  Serious: Yes (Hospitalization)
  Sender: FDA-Public Use
  Company Number: US-BRISTOL-MYERS SQUIBB COMPANY-14312789

PATIENT
  Age: 75 Year
  Sex: Male

DRUGS (12)
  1. CARBOPLATIN [Suspect]
     Indication: NON-SMALL CELL LUNG CANCER
     Dosage: FIRST DOSE 167MG ON 14-APR-08
     Route: 042
     Dates: start: 20080729, end: 20080729
  2. ABRAXANE [Suspect]
     Indication: NON-SMALL CELL LUNG CANCER
     Dosage: FIRST DOSE OF 79MG ON 14APR08
     Route: 042
     Dates: start: 20080812, end: 20080812
  3. EXFORGE [Concomitant]
     Indication: CARDIAC DISORDER
     Dates: start: 20080429
  4. ALLOPURINOL [Concomitant]
     Indication: GOUT
     Dates: start: 20060101
  5. ASPIRIN [Concomitant]
     Indication: PROPHYLAXIS
     Dates: start: 20060101
  6. CLARITIN [Concomitant]
     Indication: HYPERSENSITIVITY
     Dosage: PRN
  7. DIGOXIN [Concomitant]
     Indication: CARDIAC DISORDER
     Dates: start: 20080506
  8. LOPRESSOR [Concomitant]
     Indication: BLOOD PRESSURE
     Dates: start: 19940101
  9. ULTRAM [Concomitant]
     Indication: ARTHRITIS
     Dates: start: 20060101
  10. ZOCOR [Concomitant]
     Indication: BLOOD CHOLESTEROL
     Dates: start: 19940101
  11. LEXAPRO [Concomitant]
  12. REGLAN [Concomitant]
     Indication: NAUSEA
     Dosage: 30MIN BEFORE MEAL
     Dates: start: 20080505

REACTIONS (2)
  - ANAEMIA [None]
  - HYPOTENSION [None]
